FAERS Safety Report 9896753 (Version 2)
Quarter: 2014Q1

REPORT INFORMATION
  Report Type: Report from Study
  Country: US (occurrence: US)
  Receive Date: 20140213
  Receipt Date: 20140320
  Transmission Date: 20141002
  Serious: Yes (Death)
  Sender: FDA-Public Use
  Company Number: US-ROCHE-1328104

PATIENT
  Sex: Female

DRUGS (7)
  1. AVASTIN [Suspect]
     Indication: BREAST CANCER
     Dosage: 10 MG/KG IN 0.9% SODIUM CHLORIDE 100 ML, INFUSED OVER 1 HOUR 12 MINUTES
     Route: 042
     Dates: start: 201004, end: 20120719
  2. AVASTIN [Suspect]
     Indication: METASTASES TO NERVOUS SYSTEM
  3. XELODA [Suspect]
     Indication: PRODUCT USED FOR UNKNOWN INDICATION
     Route: 065
     Dates: start: 20110822, end: 20120105
  4. KYTRIL [Suspect]
     Indication: PRODUCT USED FOR UNKNOWN INDICATION
     Dosage: OVER 1 MINUTE BY IV PUSH
     Route: 042
  5. DECADRON [Concomitant]
     Indication: BREAST CANCER
     Dosage: IN 0.9% SODIUM CHLORIDE 50 ML
     Route: 042
  6. ABRAXANE [Concomitant]
     Dosage: 260 MG/M2
     Route: 042
  7. DOXIL (UNITED STATES) [Concomitant]
     Route: 065
     Dates: end: 20120731

REACTIONS (1)
  - Breast cancer [Fatal]
